FAERS Safety Report 5511740-5 (Version None)
Quarter: 2007Q4

REPORT INFORMATION
  Report Type: 
  Country: None (occurrence: None)
  Receive Date: 20071109
  Receipt Date: 20071107
  Transmission Date: 20080405
  Serious: Yes (Hospitalization)
  Sender: FDA-Public Use
  Company Number: FR-ROXANE LABORATORIES, INC-2007-BP-24017RO

PATIENT
  Age: 58 Year
  Sex: Female

DRUGS (4)
  1. PREDNISONE [Suspect]
     Indication: IMMUNOSUPPRESSION
     Dates: start: 19990101
  2. MYCOPHENOLATE MOFETIL [Suspect]
     Indication: IMMUNOSUPPRESSION
     Dates: start: 19990101
  3. TACROLIMUS [Suspect]
     Indication: IMMUNOSUPPRESSION
     Dates: start: 19990101, end: 20000301
  4. ITRACONAZOLE [Concomitant]
     Indication: FUNGAL INFECTION

REACTIONS (15)
  - ASTHENIA [None]
  - CYTOMEGALOVIRUS GASTROINTESTINAL INFECTION [None]
  - DIARRHOEA [None]
  - ESCHERICHIA URINARY TRACT INFECTION [None]
  - FOOD AVERSION [None]
  - FUNGAL SKIN INFECTION [None]
  - FUNGUS STOOL IDENTIFIED [None]
  - GASTROINTESTINAL INFECTION [None]
  - GENERAL PHYSICAL HEALTH DETERIORATION [None]
  - GENERALISED OEDEMA [None]
  - IMMUNOSUPPRESSION [None]
  - OESOPHAGITIS [None]
  - PARASITE STOOL TEST POSITIVE [None]
  - STAPHYLOCOCCAL SEPSIS [None]
  - VOMITING [None]
